FAERS Safety Report 21104540 (Version 1)
Quarter: 2022Q3

REPORT INFORMATION
  Report Type: Report from Study
  Country: US (occurrence: US)
  Receive Date: 20220720
  Receipt Date: 20220720
  Transmission Date: 20221026
  Serious: Yes (Death, Other)
  Sender: FDA-Public Use
  Company Number: US-BRISTOL-MYERS SQUIBB COMPANY-2022-073199

PATIENT
  Age: 56 Year
  Sex: Male
  Weight: 118.84 kg

DRUGS (7)
  1. POMALYST [Suspect]
     Active Substance: POMALIDOMIDE
     Indication: Plasma cell myeloma
     Route: 048
     Dates: start: 20220510
  2. ELIQUIS [Concomitant]
     Active Substance: APIXABAN
     Route: 065
  3. DEXAMETHASONE [Concomitant]
     Active Substance: DEXAMETHASONE
     Route: 065
  4. Krill [Concomitant]
     Route: 065
  5. VITAMIN D3 [Concomitant]
     Active Substance: CHOLECALCIFEROL
     Route: 065
  6. ZARXIO [Concomitant]
     Active Substance: FILGRASTIM-SNDZ
     Route: 065
  7. EUFLEXXA [Concomitant]
     Active Substance: HYALURONATE SODIUM
     Route: 065

REACTIONS (1)
  - Death [Fatal]
